FAERS Safety Report 7491042-0 (Version None)
Quarter: 2011Q2

REPORT INFORMATION
  Report Type: 
  Country: None (occurrence: None)
  Receive Date: 20110517
  Receipt Date: 20110517
  Transmission Date: 20111010
  Serious: No
  Sender: FDA-Public Use
  Company Number: None

PATIENT
  Age: 10 Year
  Sex: Male
  Weight: 29.4838 kg

DRUGS (2)
  1. METHYLPHENIDATE [Suspect]
     Indication: ATTENTION DEFICIT/HYPERACTIVITY DISORDER
     Dosage: 36 MG ONCE DAILY PO
     Route: 048
     Dates: start: 20110514, end: 20110514
  2. METHYLPHENIDATE [Suspect]
     Indication: OPPOSITIONAL DEFIANT DISORDER
     Dosage: 36 MG ONCE DAILY PO
     Route: 048
     Dates: start: 20110514, end: 20110514

REACTIONS (6)
  - PRODUCT SUBSTITUTION ISSUE [None]
  - DISTURBANCE IN ATTENTION [None]
  - RESTLESSNESS [None]
  - AGGRESSION [None]
  - AGITATION [None]
  - INITIAL INSOMNIA [None]
